FAERS Safety Report 7880428-8 (Version None)
Quarter: 2011Q4

REPORT INFORMATION
  Report Type: 
  Country: None (occurrence: None)
  Receive Date: 20111101
  Receipt Date: 20111026
  Transmission Date: 20120403
  Serious: Yes (Death, Other)
  Sender: FDA-Public Use
  Company Number: PHHY2011US95848

PATIENT
  Age: 14 Year
  Sex: Female

DRUGS (6)
  1. CYCLOPHOSPHAMIDE [Concomitant]
  2. CYCLOSPORINE [Suspect]
     Indication: PROPHYLAXIS AGAINST GRAFT VERSUS HOST DISEASE
  3. PREDNISONE [Concomitant]
  4. ETOPOSIDE [Concomitant]
  5. VINCRISTINE [Concomitant]
  6. DOXORUBICIN HCL [Concomitant]

REACTIONS (3)
  - MUCOSAL INFLAMMATION [None]
  - EWING'S SARCOMA RECURRENT [None]
  - CONCOMITANT DISEASE PROGRESSION [None]
